FAERS Safety Report 4960256-3 (Version None)
Quarter: 2006Q2

REPORT INFORMATION
  Report Type: 
  Country: None (occurrence: None)
  Receive Date: 20060403
  Receipt Date: 20060322
  Transmission Date: 20061013
  Serious: Yes (Hospitalization, Other)
  Sender: FDA-Public Use
  Company Number: JP-JNJFOC-20060103505

PATIENT
  Sex: Female
  Weight: 55 kg

DRUGS (12)
  1. REMICADE [Suspect]
     Route: 042
  2. REMICADE [Suspect]
     Route: 042
  3. REMICADE [Suspect]
     Route: 042
  4. REMICADE [Suspect]
     Indication: RHEUMATOID ARTHRITIS
     Route: 042
  5. PREDONINE [Suspect]
     Route: 048
  6. PREDONINE [Suspect]
     Indication: RHEUMATOID ARTHRITIS
     Route: 048
  7. RHEUMATREX [Suspect]
     Indication: RHEUMATOID ARTHRITIS
     Route: 048
  8. ROCALTROL [Concomitant]
     Dosage: ADDITIONAL INFORMATION RECEIVED ON 6-MAR-06: DOSE IS 0.5 RG (WAS 0.5MG)
     Route: 048
  9. CONIEL [Concomitant]
     Route: 048
  10. MICARDIS [Concomitant]
     Route: 048
  11. FOLIAMIN [Concomitant]
     Route: 048
  12. MOBIC [Concomitant]
     Route: 048

REACTIONS (1)
  - PULMONARY TUBERCULOSIS [None]
